FAERS Safety Report 9019650 (Version 1)
Quarter: 2013Q1

REPORT INFORMATION
  Report Type: Report from Study
  Country: DK (occurrence: DK)
  Receive Date: 20130118
  Receipt Date: 20130118
  Transmission Date: 20140127
  Serious: Yes (Hospitalization)
  Sender: FDA-Public Use
  Company Number: DK-ROCHE-1179893

PATIENT
  Age: 63 None
  Sex: Male

DRUGS (8)
  1. BEVACIZUMAB [Suspect]
     Indication: METASTATIC RENAL CELL CARCINOMA
     Route: 042
     Dates: start: 20120904, end: 20130114
  2. ALDESLEUKIN [Suspect]
     Indication: METASTATIC RENAL CELL CARCINOMA
     Route: 058
     Dates: start: 20120904, end: 20130108
  3. INTERFERON ALFA [Suspect]
     Indication: METASTATIC RENAL CELL CARCINOMA
     Route: 058
     Dates: start: 20120828, end: 20130108
  4. PANTOPRAZOL [Concomitant]
     Route: 048
     Dates: start: 20130109
  5. IMOLOPE [Concomitant]
     Route: 048
  6. SOLU-MEDROL [Concomitant]
     Route: 042
     Dates: start: 20130109
  7. TEMESTA [Concomitant]
     Route: 048
     Dates: start: 20120828
  8. CIPRAM [Concomitant]
     Route: 048
     Dates: start: 20120918

REACTIONS (1)
  - Confusional state [Unknown]
